FAERS Safety Report 23682802 (Version 1)
Quarter: 2024Q1

REPORT INFORMATION
  Report Type: Spontaneous
  Country: EG (occurrence: EG)
  Receive Date: 20240328
  Receipt Date: 20240328
  Transmission Date: 20240410
  Serious: Yes (Other)
  Sender: FDA-Public Use
  Company Number: EG-HIKMA PHARMACEUTICALS USA INC.-EG-H14001-24-02442

PATIENT

DRUGS (2)
  1. IFOSFAMIDE [Suspect]
     Active Substance: IFOSFAMIDE
     Indication: Sarcoma
     Dosage: UNKNOWN, ON DAYS 1,3, 5
     Route: 065
     Dates: start: 20230703
  2. MESNA [Suspect]
     Active Substance: MESNA
     Indication: Sarcoma
     Dosage: UNKNOWN
     Route: 065
     Dates: start: 20230703

REACTIONS (1)
  - Encephalopathy [Recovered/Resolved]

NARRATIVE: CASE EVENT DATE: 20230704
